FAERS Safety Report 10420996 (Version 1)
Quarter: 2014Q3

REPORT INFORMATION
  Report Type: Spontaneous
  Country: IT (occurrence: None)
  Receive Date: 20140828
  Receipt Date: 20140828
  Transmission Date: 20150326
  Serious: Yes (Hospitalization)
  Sender: FDA-Public Use
  Company Number: FK201403412

PATIENT
  Age: 28 Year
  Sex: Male

DRUGS (7)
  1. CARBOPLATIN (MANUFACTURER UNKNOWN) (CARBOPLATIN) (CARBOPLATIN) [Suspect]
     Active Substance: CARBOPLATIN
     Indication: TESTIS CANCER
  2. G-CSF (GRANULOCYTE COLONY STIMULATING FACTOR) (GRANULOCYTE COLONY STIMULATING FACTOR) [Suspect]
     Active Substance: FILGRASTIM
     Indication: TESTIS CANCER
     Dates: start: 2010
  3. BLEOMYCIN [Suspect]
     Active Substance: BLEOMYCIN SULFATE
     Indication: TESTIS CANCER
     Dates: end: 2010
  4. ETOPOSIDE. [Suspect]
     Active Substance: ETOPOSIDE
     Indication: TESTIS CANCER
     Dates: end: 2010
  5. PACLITAXEL (MANUFACTURER UNKNOWN) (PACLITAXEL) (PACLITAXEL) [Suspect]
     Active Substance: PACLITAXEL
     Indication: TESTIS CANCER
     Dates: end: 2010
  6. CISPLATIN. [Suspect]
     Active Substance: CISPLATIN
     Indication: TESTIS CANCER
     Dates: end: 2010
  7. IFOSFAMIDE (MANUFACTURER UNKNOWN) (IFOSFAMIDE) (IFOSFAMIDE) [Suspect]
     Active Substance: IFOSFAMIDE
     Indication: TESTIS CANCER
     Dates: end: 2010

REACTIONS (1)
  - Lipomatosis [None]

NARRATIVE: CASE EVENT DATE: 2011
